FAERS Safety Report 7250097-9 (Version None)
Quarter: 2011Q1

REPORT INFORMATION
  Report Type: 
  Country: None (occurrence: None)
  Receive Date: 20110128
  Receipt Date: 20101222
  Transmission Date: 20110831
  Serious: Yes (Hospitalization)
  Sender: FDA-Public Use
  Company Number: US-BAYER-201026289NA

PATIENT
  Sex: Female
  Weight: 61.224 kg

DRUGS (10)
  1. POTASSIUM [Concomitant]
     Indication: ELECTROLYTE IMBALANCE
  2. YAZ [Suspect]
     Indication: ACNE
  3. ROBAXIN [Concomitant]
     Indication: MUSCLE STRAIN
     Dosage: UNK
     Dates: start: 20070806
  4. ATARAX [Concomitant]
     Dosage: UNK
     Dates: start: 20070801
  5. LOVENOX [Concomitant]
     Indication: DEEP VEIN THROMBOSIS
  6. MOBIC [Concomitant]
     Indication: MUSCLE STRAIN
     Dosage: UNK
     Dates: start: 20070806
  7. IBUPROFEN [Concomitant]
     Dosage: UNK
     Dates: start: 20070601
  8. NAPROXEN [Concomitant]
     Dosage: UNK
     Dates: start: 20070416
  9. YAZ [Suspect]
     Indication: ORAL CONTRACEPTION
     Dosage: UNK UNK, QD
     Route: 048
     Dates: start: 20070201, end: 20070801
  10. YAZ [Suspect]
     Indication: MENORRHAGIA

REACTIONS (5)
  - OEDEMA PERIPHERAL [None]
  - GAIT DISTURBANCE [None]
  - DEEP VEIN THROMBOSIS [None]
  - PAIN IN EXTREMITY [None]
  - ERYTHEMA [None]
